FAERS Safety Report 6686876-6 (Version None)
Quarter: 2010Q2

REPORT INFORMATION
  Report Type: 
  Country: None (occurrence: None)
  Receive Date: 20100419
  Receipt Date: 20100408
  Transmission Date: 20101027
  Serious: Yes (Hospitalization)
  Sender: FDA-Public Use
  Company Number: FR-BRISTOL-MYERS SQUIBB COMPANY-15066236

PATIENT
  Age: 76 Year
  Sex: Male

DRUGS (5)
  1. GLUCOPHAGE [Suspect]
     Indication: TYPE 1 DIABETES MELLITUS
     Route: 048
     Dates: start: 20091112, end: 20091125
  2. PARACETAMOL TABS [Suspect]
     Indication: PAIN
     Route: 048
     Dates: start: 20091106, end: 20091126
  3. RIFAMPICIN [Suspect]
     Indication: INFECTION
     Dosage: IV: 5-6NOV09(1 DAY); 13-17NOV09 (4 DAYS) ORAL:18-25NOV09(7 DAYS) FORM: INJ
     Route: 042
     Dates: start: 20091105, end: 20091117
  4. AMOXICILLIN [Concomitant]
     Indication: INFECTION
     Dosage: 2 GRAM: SOLN FOR INJ
     Route: 042
     Dates: start: 20091106
  5. CONTRAMAL [Concomitant]
     Indication: PAIN
     Dosage: TABS
     Route: 048
     Dates: start: 20091112, end: 20091118

REACTIONS (5)
  - CHOLESTASIS [None]
  - DEHYDRATION [None]
  - LACTIC ACIDOSIS [None]
  - RENAL FAILURE [None]
  - VOMITING [None]
